FAERS Safety Report 6678272-2 (Version None)
Quarter: 2010Q2

REPORT INFORMATION
  Report Type: 
  Country: None (occurrence: None)
  Receive Date: 20100412
  Receipt Date: 20100401
  Transmission Date: 20101027
  Serious: Yes (Other)
  Sender: FDA-Public Use
  Company Number: US-BRISTOL-MYERS SQUIBB COMPANY-15051402

PATIENT
  Age: 59 Year
  Sex: Male

DRUGS (1)
  1. CARBIDOPA + LEVODOPA [Suspect]
     Indication: RESTLESS LEGS SYNDROME
     Route: 048

REACTIONS (2)
  - RENAL FAILURE ACUTE [None]
  - RETROPERITONEAL FIBROSIS [None]
